APPROVED DRUG PRODUCT: CLONAZEPAM
Active Ingredient: CLONAZEPAM
Strength: 0.5MG
Dosage Form/Route: TABLET;ORAL
Application: A075150 | Product #001 | TE Code: AB
Applicant: AUROBINDO PHARMA USA INC
Approved: Oct 5, 1998 | RLD: No | RS: No | Type: RX